FAERS Safety Report 6632259-4 (Version None)
Quarter: 2010Q1

REPORT INFORMATION
  Report Type: 
  Country: None (occurrence: None)
  Receive Date: 20100310
  Receipt Date: 20100302
  Transmission Date: 20100710
  Serious: Yes (Death)
  Sender: FDA-Public Use
  Company Number: 2010US000124

PATIENT
  Sex: Male

DRUGS (2)
  1. PROGRAF [Suspect]
     Indication: HEART TRANSPLANT
     Dates: start: 20090301, end: 20090614
  2. CELLCEPT [Suspect]
     Indication: HEART TRANSPLANT

REACTIONS (2)
  - HERPES ZOSTER [None]
  - PNEUMONIA FUNGAL [None]
